FAERS Safety Report 10706210 (Version 1)
Quarter: 2015Q1

REPORT INFORMATION
  Report Type: Spontaneous
  Country: CN (occurrence: CN)
  Receive Date: 20150113
  Receipt Date: 20150113
  Transmission Date: 20150721
  Serious: Yes (Other)
  Sender: FDA-Public Use
  Company Number: CN-CIPLA LTD.-2014CN03095

PATIENT

DRUGS (3)
  1. METHROTREXATE [Concomitant]
     Active Substance: METHOTREXATE
  2. LAMIVUDINE. [Suspect]
     Active Substance: LAMIVUDINE
  3. HYDROXYCHLOROQUINE [Concomitant]
     Active Substance: HYDROXYCHLOROQUINE

REACTIONS (1)
  - Hepatitis B [Unknown]
